FAERS Safety Report 8356949 (Version 4)
Quarter: 2013Q1

REPORT INFORMATION
  Report Type: Spontaneous
  Country: US (occurrence: US)
  Receive Date: 20120126
  Receipt Date: 20130130
  Transmission Date: 20140127
  Serious: Yes (Other)
  Sender: FDA-Public Use
  Company Number: US-ASTRAZENECA-2011SE78700

PATIENT
  Age: 75 Year
  Sex: Female

DRUGS (4)
  1. NEXIUM [Suspect]
     Indication: GASTROOESOPHAGEAL REFLUX DISEASE
     Route: 048
  2. NEXIUM [Suspect]
     Indication: GASTROOESOPHAGEAL REFLUX DISEASE
     Route: 048
  3. PRILOSEC [Suspect]
     Route: 048
  4. PRILOSEC [Suspect]
     Route: 048

REACTIONS (18)
  - Haemoptysis [Unknown]
  - Ulcer haemorrhage [Unknown]
  - Back pain [Unknown]
  - Bronchitis [Unknown]
  - Aphagia [Unknown]
  - Dysphagia [Recovering/Resolving]
  - Pneumonia [Unknown]
  - Sinusitis [Unknown]
  - Dyspepsia [Unknown]
  - Vestibular disorder [Unknown]
  - Gastrooesophageal reflux disease [Unknown]
  - Hyperchlorhydria [Unknown]
  - Oral discomfort [Unknown]
  - Nausea [Unknown]
  - Abdominal pain upper [Unknown]
  - Abdominal discomfort [Unknown]
  - Drug ineffective [Unknown]
  - Drug dose omission [Unknown]
